FAERS Safety Report 21967720 (Version 2)
Quarter: 2023Q1

REPORT INFORMATION
  Report Type: Spontaneous
  Country: FR (occurrence: FR)
  Receive Date: 20230208
  Receipt Date: 20230326
  Transmission Date: 20230417
  Serious: Yes (Hospitalization)
  Sender: FDA-Public Use
  Company Number: None

PATIENT
  Age: 38 Year
  Sex: Female
  Weight: 56 kg

DRUGS (15)
  1. CARBOPLATIN [Suspect]
     Active Substance: CARBOPLATIN
     Indication: Triple negative breast cancer
     Dates: start: 20220614, end: 20220614
  2. CARBOPLATIN [Suspect]
     Active Substance: CARBOPLATIN
     Dates: start: 20220517, end: 20220517
  3. CARBOPLATIN [Suspect]
     Active Substance: CARBOPLATIN
     Dates: start: 20220607, end: 20220607
  4. CARBOPLATIN [Suspect]
     Active Substance: CARBOPLATIN
     Dates: start: 20220510, end: 20220510
  5. CARBOPLATIN [Suspect]
     Active Substance: CARBOPLATIN
     Dates: start: 20220712, end: 20220712
  6. CARBOPLATIN [Suspect]
     Active Substance: CARBOPLATIN
     Dates: start: 20220705, end: 20220705
  7. KEYTRUDA [Suspect]
     Active Substance: PEMBROLIZUMAB
     Indication: Triple negative breast cancer
     Dates: start: 20220607, end: 20220607
  8. KEYTRUDA [Suspect]
     Active Substance: PEMBROLIZUMAB
     Dates: start: 20220510, end: 20220510
  9. KEYTRUDA [Suspect]
     Active Substance: PEMBROLIZUMAB
     Dates: start: 20220705, end: 20220705
  10. GEMCITABINE [Suspect]
     Active Substance: GEMCITABINE
     Indication: Triple negative breast cancer
     Dates: start: 20220607, end: 20220607
  11. GEMCITABINE [Suspect]
     Active Substance: GEMCITABINE
     Dates: start: 20220712, end: 20220712
  12. GEMCITABINE [Suspect]
     Active Substance: GEMCITABINE
     Dates: start: 20220517, end: 20220517
  13. GEMCITABINE [Suspect]
     Active Substance: GEMCITABINE
     Dates: start: 20220510, end: 20220510
  14. GEMCITABINE [Suspect]
     Active Substance: GEMCITABINE
     Dates: start: 20220614, end: 20220614
  15. GEMCITABINE [Suspect]
     Active Substance: GEMCITABINE
     Dates: start: 20220705, end: 20220705

REACTIONS (1)
  - Pancytopenia [Recovered/Resolved]

NARRATIVE: CASE EVENT DATE: 20220627
